FAERS Safety Report 7792172-6 (Version None)
Quarter: 2011Q4

REPORT INFORMATION
  Report Type: 
  Country: None (occurrence: None)
  Receive Date: 20111003
  Receipt Date: 20111003
  Transmission Date: 20120403
  Serious: No
  Sender: FDA-Public Use
  Company Number: None

PATIENT
  Age: 29 Year
  Sex: Female
  Weight: 79.8 kg

DRUGS (1)
  1. DAPTOMYCIN [Suspect]
     Indication: CELLULITIS
     Dosage: 475MG
     Route: 042
     Dates: start: 20110919, end: 20110928

REACTIONS (1)
  - BLOOD CREATINE PHOSPHOKINASE INCREASED [None]
